FAERS Safety Report 18413423 (Version 1)
Quarter: 2020Q4

REPORT INFORMATION
  Report Type: Report from Study
  Country: US (occurrence: US)
  Receive Date: 20201021
  Receipt Date: 20201021
  Transmission Date: 20210114
  Serious: Yes (Hospitalization)
  Sender: FDA-Public Use
  Company Number: US-BAXTER-2020BAX021256

PATIENT
  Sex: Female
  Weight: 61.2 kg

DRUGS (14)
  1. CYCLOPHOSPHAMIDE FOR INJECTION, USP [Suspect]
     Active Substance: CYCLOPHOSPHAMIDE
     Indication: B PRECURSOR TYPE ACUTE LEUKAEMIA
     Dosage: COURSES 1-3
     Route: 065
  2. CYTARABINE. [Suspect]
     Active Substance: CYTARABINE
     Dosage: COURSE 4, CUMULATIVE DOSE FOR CYCLE 4: 960 MG
     Route: 065
     Dates: start: 20200810, end: 20200820
  3. METHOTREXATE SODIUM. [Suspect]
     Active Substance: METHOTREXATE SODIUM
     Dosage: COURSE 4, CUMULATIVE DOSE FOR CYCLE 4: 30 MG
     Route: 037
     Dates: start: 20200701, end: 20200810
  4. CYCLOPHOSPHAMIDE FOR INJECTION, USP [Suspect]
     Active Substance: CYCLOPHOSPHAMIDE
     Dosage: COURSE 4, CUMULATIVE DOSE FOR CYCLE 4: 1570 MG
     Route: 065
     Dates: start: 20200810, end: 20200810
  5. METHOTREXATE SODIUM. [Suspect]
     Active Substance: METHOTREXATE SODIUM
     Indication: B PRECURSOR TYPE ACUTE LEUKAEMIA
     Dosage: COURSES 1-3
     Route: 037
  6. VINCRISTINE SULFATE. [Suspect]
     Active Substance: VINCRISTINE SULFATE
     Dosage: COURSE 4, DOSES GIVEN ON 29JUN2020, 06JUL2020, AND 13JUL2020, CUMULATIVE DOSE FOR CYCLE 4: 6 MG
     Route: 065
     Dates: start: 20200629, end: 20200713
  7. THIOGUANINE [Suspect]
     Active Substance: THIOGUANINE
     Indication: B PRECURSOR TYPE ACUTE LEUKAEMIA
     Dosage: COURSES 1-3
     Route: 065
  8. THIOGUANINE [Suspect]
     Active Substance: THIOGUANINE
     Dosage: COURSE 4, CUMULATIVE DOSE FOR CYCLE 4: 1320 MG, 420MG/M2/WEEK
     Route: 065
     Dates: start: 20200810, end: 20200823
  9. DOXIL [Suspect]
     Active Substance: DOXORUBICIN HYDROCHLORIDE
     Dosage: COURSES 4, DOSES GIVEN ON 29JUN2020, 06JUL2020, AND 13JUL2020, CUMULATIVE DOSE FOR CYCLE 4: 117.6 MG
     Route: 065
     Dates: start: 20200629, end: 20200713
  10. PEGASPARGASE [Suspect]
     Active Substance: PEGASPARGASE
     Indication: B PRECURSOR TYPE ACUTE LEUKAEMIA
     Dosage: COURSES 1-3
     Route: 065
  11. CYTARABINE. [Suspect]
     Active Substance: CYTARABINE
     Indication: B PRECURSOR TYPE ACUTE LEUKAEMIA
     Dosage: COURSES 1-3
     Route: 065
  12. VINCRISTINE SULFATE. [Suspect]
     Active Substance: VINCRISTINE SULFATE
     Indication: B PRECURSOR TYPE ACUTE LEUKAEMIA
     Dosage: COURSES 1-3
     Route: 065
  13. DOXIL [Suspect]
     Active Substance: DOXORUBICIN HYDROCHLORIDE
     Indication: B PRECURSOR TYPE ACUTE LEUKAEMIA
     Dosage: COURSES 1-3
     Route: 065
  14. PEGASPARGASE [Suspect]
     Active Substance: PEGASPARGASE
     Dosage: COURSE 4, CUMULATIVE DOSE FOR CYCLE 4: 3150 UNIT
     Route: 065
     Dates: start: 20200702, end: 20200702

REACTIONS (1)
  - Febrile neutropenia [Recovered/Resolved with Sequelae]

NARRATIVE: CASE EVENT DATE: 20200824
